FAERS Safety Report 14764586 (Version 1)
Quarter: 2018Q2

REPORT INFORMATION
  Report Type: Spontaneous
  Country: US (occurrence: US)
  Receive Date: 20180410
  Receipt Date: 20180410
  Transmission Date: 20180711
  Serious: Yes (Other)
  Sender: FDA-Public Use
  Company Number: None

PATIENT
  Age: 79 Year
  Sex: Male
  Weight: 56.7 kg

DRUGS (1)
  1. GAZYVA [Suspect]
     Active Substance: OBINUTUZUMAB
     Indication: CHRONIC LYMPHOCYTIC LEUKAEMIA
     Dosage: TEST DOSE
     Route: 042
     Dates: start: 20180321

REACTIONS (5)
  - Headache [None]
  - Hypotension [None]
  - Lethargy [None]
  - Abdominal pain upper [None]
  - Chills [None]

NARRATIVE: CASE EVENT DATE: 20180321
